FAERS Safety Report 20279597 (Version 1)
Quarter: 2022Q1

REPORT INFORMATION
  Report Type: Report from Study
  Country: US (occurrence: US)
  Receive Date: 20220103
  Receipt Date: 20220103
  Transmission Date: 20220423
  Serious: Yes (Hospitalization)
  Sender: FDA-Public Use
  Company Number: US-ASTELLAS-2021US050009

PATIENT
  Sex: Female

DRUGS (2)
  1. GILTERITINIB [Suspect]
     Active Substance: GILTERITINIB
     Indication: Acute myeloid leukaemia
     Route: 048
     Dates: start: 20210311
  2. GILTERITINIB [Suspect]
     Active Substance: GILTERITINIB
     Route: 048

REACTIONS (5)
  - Toothache [Unknown]
  - Vision blurred [Unknown]
  - White blood cell count decreased [Unknown]
  - Back pain [Unknown]
  - Exposure during pregnancy [Unknown]
